FAERS Safety Report 9853911 (Version 1)
Quarter: 2014Q1

REPORT INFORMATION
  Report Type: Spontaneous
  Country: DE (occurrence: DE)
  Receive Date: 20140129
  Receipt Date: 20140129
  Transmission Date: 20141002
  Serious: Yes (Hospitalization, Other)
  Sender: FDA-Public Use
  Company Number: DE-ACTAVIS-2014-01186

PATIENT
  Age: 74 Year
  Sex: Female

DRUGS (5)
  1. CARBIDOPA/LEVODOPA (AELLC) [Suspect]
     Indication: PARKINSON^S DISEASE
     Dosage: 120 MG LEVODOPA/ H
     Route: 050
  2. CARBIDOPA/LEVODOPA (AELLC) [Suspect]
     Dosage: 140 MG LEVODOPA/H FROM 6 AM TO 10 PM
     Route: 050
  3. CARBIDOPA/LEVODOPA (AELLC) [Suspect]
     Dosage: 2240 MG, DAILY
     Route: 050
  4. CARBIDOPA/LEVODOPA (AELLC) [Suspect]
     Dosage: 200 MG, QPM
     Route: 048
  5. MOXONIDINE [Concomitant]
     Indication: HYPERTENSION
     Dosage: UNK
     Route: 065

REACTIONS (4)
  - Partial seizures with secondary generalisation [Recovered/Resolved]
  - Vitamin B6 deficiency [Recovered/Resolved]
  - Neuropathy peripheral [Unknown]
  - Anaemia [Unknown]
